FAERS Safety Report 6511784-0 (Version None)
Quarter: 2009Q4

REPORT INFORMATION
  Report Type: 
  Country: None (occurrence: None)
  Receive Date: 20091222
  Receipt Date: 20090408
  Transmission Date: 20100525
  Serious: No
  Sender: FDA-Public Use
  Company Number: US-ASTRAZENECA-2009UW08799

PATIENT
  Age: 688 Month
  Sex: Female
  Weight: 81.6 kg

DRUGS (7)
  1. CRESTOR [Suspect]
     Indication: BLOOD CHOLESTEROL INCREASED
     Route: 048
     Dates: start: 20090201
  2. PEPCID [Concomitant]
  3. ATIVAN [Concomitant]
  4. LEXAPRO [Concomitant]
  5. ZOFRAN [Concomitant]
  6. ALLEGRA [Concomitant]
  7. VOLTAREN [Concomitant]

REACTIONS (2)
  - EAR PAIN [None]
  - NECK PAIN [None]
